FAERS Safety Report 22211651 (Version 1)
Quarter: 2023Q2

REPORT INFORMATION
  Report Type: Spontaneous
  Country: US (occurrence: US)
  Receive Date: 20230414
  Receipt Date: 20230414
  Transmission Date: 20230721
  Serious: No
  Sender: FDA-Public Use
  Company Number: US-BAYER-2023A034949

PATIENT
  Age: 67 Year
  Sex: Male

DRUGS (4)
  1. ASTEPRO [Suspect]
     Active Substance: AZELASTINE HYDROCHLORIDE
     Indication: Hypersensitivity
     Dosage: 2 SPRAY IN EACH NOSTRIL TWICE IN A DAY
     Route: 045
     Dates: start: 20230308, end: 20230309
  2. ASTEPRO [Suspect]
     Active Substance: AZELASTINE HYDROCHLORIDE
     Indication: Nasopharyngitis
  3. VICKS SPRAY NASAL [MENTHOL;OXYMETAZOLINE HYDROCHLORIDE] [Concomitant]
     Indication: Hypersensitivity
     Route: 045
  4. VICKS SPRAY NASAL [MENTHOL;OXYMETAZOLINE HYDROCHLORIDE] [Concomitant]
     Indication: Nasopharyngitis

REACTIONS (2)
  - Product use in unapproved indication [None]
  - Drug ineffective [Recovering/Resolving]

NARRATIVE: CASE EVENT DATE: 20230308
